FAERS Safety Report 8363386-1 (Version None)
Quarter: 2012Q1

REPORT INFORMATION
  Report Type: 
  Country: None (occurrence: None)
  Receive Date: 20120323
  Receipt Date: 20110517
  Transmission Date: 20120608
  Serious: Yes (Hospitalization)
  Sender: FDA-Public Use
  Company Number: 163-21880-11052309

PATIENT
  Age: 62 Year
  Sex: Male

DRUGS (10)
  1. REVLIMID [Suspect]
     Indication: MULTIPLE MYELOMA
     Dosage: 25 MG, QD X 21 DAYS, PO
     Route: 048
     Dates: start: 20101228
  2. REVLIMID [Suspect]
     Indication: MULTIPLE MYELOMA
     Dosage: 25 MG, QD X 21 DAYS, PO
     Route: 048
     Dates: start: 20110501
  3. LOVENOX [Concomitant]
  4. FRAGMIN [Concomitant]
  5. POTASSIUM CHLORIDE [Concomitant]
  6. DEXAMETHASONE [Concomitant]
  7. OMEPRAZOLE [Concomitant]
  8. ALBUTEROL (ISALBUTAMOL) [Concomitant]
  9. GABAPENTIN [Concomitant]
  10. SIMVASTATIN [Concomitant]

REACTIONS (1)
  - ANAEMIA [None]
